FAERS Safety Report 19770497 (Version 1)
Quarter: 2021Q3

REPORT INFORMATION
  Report Type: Spontaneous
  Country: US (occurrence: US)
  Receive Date: 20210831
  Receipt Date: 20210831
  Transmission Date: 20211014
  Serious: Yes (Other)
  Sender: FDA-Public Use
  Company Number: None

PATIENT
  Age: 8 Year
  Sex: Female
  Weight: 27.45 kg

DRUGS (2)
  1. NEUTROGENA BEACH DEF WATER PLUS SUN PROT BR^D SPECT SPF 70 (AV\HOM\OCTI\OCTO\OX) [Suspect]
     Active Substance: AVOBENZONE\HOMOSALATE\OCTISALATE\OCTOCRYLENE\OXYBENZONE
     Indication: PROPHYLAXIS AGAINST SOLAR RADIATION
     Dates: start: 20210829, end: 20210829
  2. VITAMIN D [Concomitant]
     Active Substance: VITAMIN D NOS

REACTIONS (3)
  - Eye swelling [None]
  - Swelling face [None]
  - Urticaria [None]

NARRATIVE: CASE EVENT DATE: 20210830
